FAERS Safety Report 9931541 (Version 1)
Quarter: 2014Q1

REPORT INFORMATION
  Report Type: Spontaneous
  Country: US (occurrence: None)
  Receive Date: 20140227
  Receipt Date: 20140227
  Transmission Date: 20141002
  Serious: Yes (Death)
  Sender: FDA-Public Use
  Company Number: None

PATIENT
  Age: 60 Year
  Sex: Male
  Weight: 90 kg

DRUGS (2)
  1. ARGATROBAN [Suspect]
     Indication: THROMBOSIS PROPHYLAXIS
     Route: 042
     Dates: start: 200411, end: 200711
  2. ARGATROBAN [Suspect]
     Route: 042
     Dates: start: 200411, end: 200711

REACTIONS (10)
  - Haemorrhage intracranial [None]
  - Asthenia [None]
  - Fatigue [None]
  - Rash [None]
  - Skin discolouration [None]
  - Liver injury [None]
  - Renal failure acute [None]
  - Hypotension [None]
  - Arthralgia [None]
  - Mental status changes [None]
